FAERS Safety Report 9575286 (Version 1)
Quarter: 2013Q4

REPORT INFORMATION
  Report Type: Spontaneous
  Country: US (occurrence: US)
  Receive Date: 20131001
  Receipt Date: 20131001
  Transmission Date: 20140711
  Serious: No
  Sender: FDA-Public Use
  Company Number: US-B.I. PHARMACEUTICALS,INC./RIDGEFIELD-2013-BI-29979BP

PATIENT
  Age: 83 Year
  Sex: Female

DRUGS (2)
  1. TRADJENTA [Suspect]
     Indication: PRODUCT USED FOR UNKNOWN INDICATION
  2. GLUCOVANCE [Concomitant]

REACTIONS (1)
  - Hypoglycaemia [Unknown]
